FAERS Safety Report 9035979 (Version 1)
Quarter: 2013Q1

REPORT INFORMATION
  Report Type: Report from Study
  Country: US (occurrence: US)
  Receive Date: 20130129
  Receipt Date: 20130129
  Transmission Date: 20140127
  Serious: No
  Sender: FDA-Public Use
  Company Number: US-ABBOTT-12P-163-0917588-00

PATIENT
  Age: 53 Year
  Sex: Female

DRUGS (5)
  1. HUMIRA 40 MG/0.8 ML PEN [Suspect]
     Indication: CROHN^S DISEASE
     Dates: start: 20120221, end: 20120221
  2. HUMIRA 40 MG/0.8 ML PEN [Suspect]
     Dates: start: 20120306, end: 20120306
  3. HUMIRA 40 MG/0.8 ML PEN [Suspect]
     Dates: start: 20120321, end: 20120321
  4. HUMIRA 40 MG/0.8 ML PEN [Suspect]
  5. AZATHIOPRINE [Concomitant]
     Indication: PRODUCT USED FOR UNKNOWN INDICATION

REACTIONS (2)
  - Hot flush [Not Recovered/Not Resolved]
  - Incorrect dose administered [Unknown]
